FAERS Safety Report 8428056-X (Version None)
Quarter: 2012Q2

REPORT INFORMATION
  Report Type: 
  Country: None (occurrence: None)
  Receive Date: 20120611
  Receipt Date: 20100625
  Transmission Date: 20120825
  Serious: Yes (Other)
  Sender: FDA-Public Use
  Company Number: JP-BRISTOL-MYERS SQUIBB COMPANY-16526089

PATIENT
  Sex: Female

DRUGS (1)
  1. ABILIFY [Suspect]
     Dosage: PLANNED DOSE INCREASE TO 15MG
     Route: 048

REACTIONS (3)
  - HALLUCINATION, AUDITORY [None]
  - ASTHMA [None]
  - HALLUCINATION, VISUAL [None]
